FAERS Safety Report 9175004 (Version 5)
Quarter: 2013Q2

REPORT INFORMATION
  Report Type: Spontaneous
  Country: US (occurrence: US)
  Receive Date: 20130320
  Receipt Date: 20130620
  Transmission Date: 20140414
  Serious: No
  Sender: FDA-Public Use
  Company Number: US-009507513-1303USA009450

PATIENT
  Sex: Female
  Weight: 51.25 kg

DRUGS (2)
  1. IMPLANON [Suspect]
     Indication: CONTRACEPTION
     Dosage: 1 DF, UNK
     Route: 059
     Dates: start: 20120719, end: 20130328
  2. IMPLANON [Suspect]
     Indication: MIGRAINE

REACTIONS (3)
  - Medical device complication [Unknown]
  - Off label use [Unknown]
  - No adverse event [Unknown]
